FAERS Safety Report 12822540 (Version 1)
Quarter: 2016Q4

REPORT INFORMATION
  Report Type: Spontaneous
  Country: US (occurrence: US)
  Receive Date: 20161006
  Receipt Date: 20161006
  Transmission Date: 20170207
  Serious: No
  Sender: FDA-Public Use
  Company Number: US-SHIONOGI, INC-2016000833

PATIENT
  Sex: Female

DRUGS (3)
  1. PAXIL [Concomitant]
     Active Substance: PAROXETINE HYDROCHLORIDE
     Indication: PRODUCT USED FOR UNKNOWN INDICATION
     Dosage: 20 MG, UNK
     Route: 065
     Dates: start: 2010
  2. TOPAMAX [Suspect]
     Active Substance: TOPIRAMATE
     Indication: TENSION HEADACHE
     Dosage: UNK
     Route: 065
     Dates: start: 201608
  3. OSPHENA [Suspect]
     Active Substance: OSPEMIFENE
     Indication: PRODUCT USED FOR UNKNOWN INDICATION
     Dosage: 60 MG, QD
     Route: 065
     Dates: start: 20160816

REACTIONS (2)
  - Irritability [Unknown]
  - Crying [Unknown]
